FAERS Safety Report 10961872 (Version 2)
Quarter: 2015Q4

REPORT INFORMATION
  Report Type: Spontaneous
  Country: GB (occurrence: GB)
  Receive Date: 20150327
  Receipt Date: 20151012
  Transmission Date: 20160304
  Serious: Yes (Hospitalization, Other)
  Sender: FDA-Public Use
  Company Number: PHFR2015GB002486

PATIENT
  Age: 41 Year
  Sex: Female

DRUGS (1)
  1. CLOZARIL [Suspect]
     Active Substance: CLOZAPINE
     Indication: SCHIZOPHRENIA
     Dosage: 250 MG, BID
     Route: 048
     Dates: start: 20100728

REACTIONS (7)
  - Psychotic disorder [Unknown]
  - Abdominal pain [Unknown]
  - Mental impairment [Unknown]
  - Swelling face [Unknown]
  - Gastrointestinal obstruction [Unknown]
  - Infection [Unknown]
  - Abscess [Unknown]

NARRATIVE: CASE EVENT DATE: 20151006
